FAERS Safety Report 5145790-8 (Version None)
Quarter: 2006Q4

REPORT INFORMATION
  Report Type: 
  Country: None (occurrence: None)
  Receive Date: 20061108
  Receipt Date: 20061027
  Transmission Date: 20070319
  Serious: Yes (Death)
  Sender: FDA-Public Use
  Company Number: JP-SANOFI-SYNTHELABO-A01200609288

PATIENT
  Age: 50 Year
  Sex: Female

DRUGS (3)
  1. OXALIPLATIN [Suspect]
     Route: 042
     Dates: start: 20060718, end: 20060718
  2. FLUOROURACIL [Suspect]
     Dosage: 400 MG/BODY IN BOLUS THEN 600 MG/BODY INFUSION ON D1+2
     Route: 042
     Dates: start: 20060718, end: 20060719
  3. CALCIUM LEVOFOLINATE [Suspect]
     Route: 042
     Dates: start: 20060718, end: 20060719

REACTIONS (1)
  - HEPATIC FAILURE [None]
